FAERS Safety Report 5876825-2 (Version None)
Quarter: 2008Q3

REPORT INFORMATION
  Report Type: 
  Country: None (occurrence: None)
  Receive Date: 20080908
  Receipt Date: 20080908
  Transmission Date: 20090109
  Serious: Yes (Other)
  Sender: FDA-Public Use
  Company Number: None

PATIENT
  Age: 36 Year
  Sex: Female
  Weight: 68.0396 kg

DRUGS (1)
  1. LEVOTHYROXINE SODIUM [Suspect]
     Indication: HYPOTHYROIDISM
     Dosage: 88MCG  ONCE DAILY PO
     Route: 048
     Dates: start: 20080609, end: 20080801

REACTIONS (2)
  - BLOOD TEST ABNORMAL [None]
  - PHARMACEUTICAL PRODUCT COMPLAINT [None]
